FAERS Safety Report 7213905-3 (Version None)
Quarter: 2011Q1

REPORT INFORMATION
  Report Type: 
  Country: None (occurrence: None)
  Receive Date: 20110106
  Receipt Date: 20101011
  Transmission Date: 20110831
  Serious: Yes (Other)
  Sender: FDA-Public Use
  Company Number: US-AMGEN GMBH-QUU408193

PATIENT

DRUGS (11)
  1. CALCIUM [Concomitant]
  2. RITUXIMAB [Concomitant]
     Dosage: UNK UNK, UNK
     Dates: start: 20020101
  3. NPLATE [Suspect]
     Indication: IDIOPATHIC THROMBOCYTOPENIC PURPURA
     Dosage: 78.3 A?G, UNK
     Dates: start: 20090130, end: 20090421
  4. NPLATE [Suspect]
     Dosage: 78.3 A?G, UNK
     Dates: start: 20090130, end: 20090421
  5. NPLATE [Suspect]
     Dosage: 78.3 A?G, UNK
     Dates: start: 20090130, end: 20090421
  6. NPLATE [Suspect]
     Dosage: 78.3 A?G, UNK
     Dates: start: 20090130, end: 20090421
  7. NPLATE [Suspect]
     Dosage: 78.3 A?G, UNK
     Dates: start: 20090130, end: 20090421
  8. IMMUNOGLOBULINS [Concomitant]
     Dosage: UNK UNK, UNK
     Dates: start: 20090101
  9. NPLATE [Suspect]
     Dosage: 78.3 A?G, UNK
     Dates: start: 20090130, end: 20090421
  10. NPLATE [Suspect]
     Dosage: 78.3 A?G, UNK
     Dates: start: 20090130, end: 20090421
  11. UNSPECIFIED THYROID MEDICATION [Concomitant]

REACTIONS (2)
  - CHRONIC LYMPHOCYTIC LEUKAEMIA [None]
  - INTERSTITIAL LUNG DISEASE [None]
